FAERS Safety Report 15454886 (Version 1)
Quarter: 2018Q4

REPORT INFORMATION
  Report Type: Spontaneous
  Country: US (occurrence: US)
  Receive Date: 20181002
  Receipt Date: 20181002
  Transmission Date: 20190204
  Serious: Yes (Other)
  Sender: FDA-Public Use
  Company Number: US-009507513-1810USA000258

PATIENT
  Age: 22 Year
  Sex: Female

DRUGS (1)
  1. IMPLANON [Suspect]
     Active Substance: ETONOGESTREL
     Dosage: 1 DF, UNK
     Route: 059

REACTIONS (7)
  - Breast tenderness [Recovered/Resolved]
  - Headache [Recovered/Resolved]
  - Complication associated with device [Recovered/Resolved]
  - Device embolisation [Recovered/Resolved]
  - Mood altered [Recovered/Resolved]
  - Device kink [Unknown]
  - Vaginal haemorrhage [Recovered/Resolved]
